FAERS Safety Report 18638679 (Version 1)
Quarter: 2020Q4

REPORT INFORMATION
  Report Type: Spontaneous
  Country: US (occurrence: US)
  Receive Date: 20201218
  Receipt Date: 20201218
  Transmission Date: 20210114
  Serious: Yes (Hospitalization, Other)
  Sender: FDA-Public Use
  Company Number: US-NEUROCRINE BIOSCIENCES INC.-2020NBI04602

PATIENT
  Age: 77 Year
  Sex: Male

DRUGS (3)
  1. SINEMET [Concomitant]
     Active Substance: CARBIDOPA\LEVODOPA
     Indication: PARKINSON^S DISEASE
  2. ONGENTYS [Suspect]
     Active Substance: OPICAPONE
     Indication: PARKINSON^S DISEASE
     Dates: start: 2020, end: 2020
  3. ISRADIPINE. [Concomitant]
     Active Substance: ISRADIPINE
     Indication: PARKINSON^S DISEASE

REACTIONS (5)
  - Neurological symptom [Unknown]
  - Dysarthria [Unknown]
  - Malaise [Unknown]
  - Blood potassium decreased [Unknown]
  - Asthenia [Unknown]

NARRATIVE: CASE EVENT DATE: 202012
